FAERS Safety Report 7153373-3 (Version None)
Quarter: 2010Q4

REPORT INFORMATION
  Report Type: 
  Country: None (occurrence: None)
  Receive Date: 20101213
  Receipt Date: 20101130
  Transmission Date: 20110411
  Serious: Yes (Other)
  Sender: FDA-Public Use
  Company Number: PHHY2010JP48219

PATIENT
  Age: 29 Day
  Sex: Female

DRUGS (3)
  1. AREDIA [Suspect]
     Indication: OSTEOGENESIS IMPERFECTA
     Dosage: 0.5 MG/KG/DAY EVERY OTHER MONTH
     Route: 041
     Dates: start: 20090601
  2. CALCIUM LACTATE [Concomitant]
     Dosage: 0.3 G/KG, QD
  3. VITAMIN D [Concomitant]
     Dosage: 0.05 UG/KG, QD

REACTIONS (3)
  - CALCIUM IONISED DECREASED [None]
  - HUMERUS FRACTURE [None]
  - PYREXIA [None]
